FAERS Safety Report 5920565-8 (Version None)
Quarter: 2008Q4

REPORT INFORMATION
  Report Type: 
  Country: None (occurrence: None)
  Receive Date: 20081015
  Receipt Date: 20081015
  Transmission Date: 20090506
  Serious: Yes (Death, Other)
  Sender: FDA-Public Use
  Company Number: None

PATIENT
  Age: 63 Year
  Sex: Male
  Weight: 115 kg

DRUGS (1)
  1. HEPARIN [Suspect]
     Indication: INTRAVENOUS CATHETER MANAGEMENT
     Dosage: 100 UNITS ONCE IV
     Route: 042
     Dates: start: 20080116

REACTIONS (2)
  - HYPOTENSION [None]
  - TACHYCARDIA [None]
